FAERS Safety Report 7638352-1 (Version None)
Quarter: 2011Q3

REPORT INFORMATION
  Report Type: 
  Country: None (occurrence: None)
  Receive Date: 20110720
  Receipt Date: 20110705
  Transmission Date: 20111222
  Serious: Yes (Life-Threatening)
  Sender: FDA-Public Use
  Company Number: 2011AP001405

PATIENT
  Age: 85 Year
  Sex: Male

DRUGS (13)
  1. COLECALCIFEROL (COLECALCIFEROL) [Concomitant]
  2. CODEINE PHOSPHATE (CODEINE PHOSPHATE) [Concomitant]
  3. LANSOPRAZOLE [Concomitant]
  4. AMLODIPINE [Concomitant]
  5. ACETAMINOPHEN [Concomitant]
  6. HYDROXYCHLOROQUINE SULFATE [Concomitant]
  7. PREDNISOLONE [Concomitant]
  8. ATENOLOL [Concomitant]
  9. FOLIC ACID [Concomitant]
  10. ALENDRONATE SODIUM [Suspect]
     Indication: OSTEOPOROSIS
     Dosage: 70 MG; QW PO
     Route: 048
     Dates: start: 20050210, end: 20110323
  11. NAPROXEN [Concomitant]
  12. CALCIUM CARBONATE [Concomitant]
  13. METHOTREXATE [Concomitant]

REACTIONS (1)
  - OESOPHAGEAL CARCINOMA [None]
